FAERS Safety Report 4392942-0 (Version None)
Quarter: 2004Q3

REPORT INFORMATION
  Report Type: 
  Country: None (occurrence: None)
  Receive Date: 20040702
  Receipt Date: 20040621
  Transmission Date: 20050211
  Serious: Yes (Disabling)
  Sender: FDA-Public Use
  Company Number: 2004AP03286

PATIENT
  Age: 58 Year
  Sex: Female

DRUGS (9)
  1. OMEPRAL [Suspect]
     Indication: GASTRIC ULCER
     Dosage: 40 MG DAILY PO
     Route: 048
     Dates: start: 20040527, end: 20040616
  2. CLARITHROMYCIN [Concomitant]
  3. SAWACILLIN [Concomitant]
  4. LEXOTAN [Concomitant]
  5. RIVOTRIL [Concomitant]
  6. TEGRETOL [Concomitant]
  7. CONSTAN [Concomitant]
  8. RIZE [Concomitant]
  9. ALTAT [Concomitant]

REACTIONS (2)
  - EATING DISORDER [None]
  - STOMATITIS [None]
